FAERS Safety Report 22115593 (Version 1)
Quarter: 2023Q1

REPORT INFORMATION
  Report Type: Spontaneous
  Country: US (occurrence: US)
  Receive Date: 20230320
  Receipt Date: 20230320
  Transmission Date: 20230417
  Serious: Yes (Hospitalization)
  Sender: FDA-Public Use
  Company Number: US-MYLANLABS-2023M1029247

PATIENT
  Age: 36 Year
  Sex: Female

DRUGS (2)
  1. LIDOCAINE [Suspect]
     Active Substance: LIDOCAINE
     Indication: Ventricular tachycardia
     Dosage: UNK
     Route: 042
  2. SOTALOL [Suspect]
     Active Substance: SOTALOL
     Indication: Ventricular tachycardia
     Dosage: UNK
     Route: 065

REACTIONS (2)
  - Drug ineffective [Unknown]
  - Maternal exposure during pregnancy [Recovered/Resolved]
